FAERS Safety Report 9264440 (Version 1)
Quarter: 2013Q2

REPORT INFORMATION
  Report Type: Spontaneous
  Country: US (occurrence: US)
  Receive Date: 20130501
  Receipt Date: 20130501
  Transmission Date: 20140414
  Serious: Yes (Hospitalization, Other)
  Sender: FDA-Public Use
  Company Number: US-B.I. PHARMACEUTICALS,INC./RIDGEFIELD-2013-BI-11305GD

PATIENT
  Age: 84 Year
  Sex: Male

DRUGS (4)
  1. PRADAXA [Suspect]
     Indication: ATRIAL FIBRILLATION
  2. BIVALIRUDIN [Suspect]
     Indication: ANTICOAGULANT THERAPY
     Dosage: TO MAINTAIN AN ACTIVATED CLOTTING TIME OF 318 SECONDS
  3. ASPIRIN [Suspect]
     Indication: ANTIPLATELET THERAPY
  4. CLOPIDOGREL [Suspect]
     Indication: ANTIPLATELET THERAPY

REACTIONS (7)
  - Acute myocardial infarction [Unknown]
  - Medical device complication [Unknown]
  - Haematoma [Unknown]
  - Ecchymosis [Unknown]
  - Neck pain [Recovered/Resolved]
  - Tracheal deviation [Recovered/Resolved]
  - Dysphagia [Unknown]
